FAERS Safety Report 7423398-9 (Version None)
Quarter: 2011Q2

REPORT INFORMATION
  Report Type: 
  Country: None (occurrence: None)
  Receive Date: 20110407
  Receipt Date: 20110328
  Transmission Date: 20111010
  Serious: Yes (Death, Hospitalization, Other)
  Sender: FDA-Public Use
  Company Number: 2010AC000473

PATIENT
  Age: 86 Year
  Sex: Female

DRUGS (9)
  1. DIGOXIN [Suspect]
     Dosage: 0.25 MG; QD; PO
     Route: 048
     Dates: start: 20060501, end: 20080131
  2. LASIX [Concomitant]
  3. COUMADIN [Concomitant]
  4. TOPROL-XL [Concomitant]
  5. DIGOXIN [Suspect]
     Indication: SUPRAVENTRICULAR EXTRASYSTOLES
     Dosage: 0.125 MG; QD; PO
     Route: 048
     Dates: start: 19950101, end: 19960201
  6. DIGOXIN [Suspect]
     Indication: ATRIAL FIBRILLATION
     Dosage: 0.125 MG; QD; PO
     Route: 048
     Dates: start: 19950101, end: 19960201
  7. PROCARDIA [Concomitant]
  8. CARDIZEM [Concomitant]
  9. RESTORIL [Concomitant]

REACTIONS (28)
  - VENTRICULAR HYPOKINESIA [None]
  - DIZZINESS [None]
  - AORTIC VALVE SCLEROSIS [None]
  - JOINT SWELLING [None]
  - HEART RATE DECREASED [None]
  - ASTHENIA [None]
  - LACERATION [None]
  - SPINAL MENINGEAL CYST [None]
  - MITRAL VALVE CALCIFICATION [None]
  - CARDIAC FLUTTER [None]
  - PYREXIA [None]
  - SINUS CONGESTION [None]
  - CARDIOVASCULAR DISORDER [None]
  - TRICUSPID VALVE INCOMPETENCE [None]
  - PERIORBITAL HAEMATOMA [None]
  - PALPITATIONS [None]
  - CONFUSIONAL STATE [None]
  - OEDEMA PERIPHERAL [None]
  - FALL [None]
  - SPINAL OSTEOARTHRITIS [None]
  - FATIGUE [None]
  - ATRIAL FIBRILLATION [None]
  - MITRAL VALVE INCOMPETENCE [None]
  - PLEURAL EFFUSION [None]
  - EJECTION FRACTION DECREASED [None]
  - BLOOD PRESSURE DIASTOLIC DECREASED [None]
  - AMNESIA [None]
  - CHONDROCALCINOSIS PYROPHOSPHATE [None]
